FAERS Safety Report 5947110-5 (Version None)
Quarter: 2008Q4

REPORT INFORMATION
  Report Type: 
  Country: None (occurrence: None)
  Receive Date: 20081110
  Receipt Date: 20081031
  Transmission Date: 20090506
  Serious: Yes (Other)
  Sender: FDA-Public Use
  Company Number: US-ROXANE LABORATORIES, INC.-2008-RO-00187RO

PATIENT
  Sex: Male

DRUGS (17)
  1. PREDNISONE TAB [Suspect]
     Indication: AUTOIMMUNE HEPATITIS
     Dosage: 120MG
     Route: 048
     Dates: start: 20080805, end: 20080805
  2. PREDNISONE TAB [Suspect]
     Indication: LYMPHOEDEMA
     Dosage: 100MG
     Route: 048
     Dates: start: 20080809, end: 20080812
  3. PREDNISONE TAB [Suspect]
     Dosage: 50MG
     Route: 048
     Dates: start: 20080812, end: 20080815
  4. PREDNISONE TAB [Suspect]
     Dosage: 40MG
     Route: 048
     Dates: start: 20080815, end: 20080820
  5. PREDNISONE TAB [Suspect]
     Dosage: 30MG
     Route: 048
     Dates: start: 20080820, end: 20080822
  6. PREDNISONE TAB [Suspect]
     Dosage: 20MG
     Route: 048
     Dates: start: 20080822, end: 20080905
  7. PREDNISONE TAB [Suspect]
     Dosage: 10MG
     Route: 048
     Dates: start: 20080905, end: 20080925
  8. PREDNISONE TAB [Suspect]
     Dosage: 40MG
     Route: 048
     Dates: start: 20080925, end: 20080929
  9. PREDNISONE TAB [Suspect]
     Dosage: 35MG
     Route: 048
     Dates: start: 20080929, end: 20081007
  10. PREDNISONE TAB [Suspect]
     Dosage: 20MG
     Route: 048
     Dates: start: 20081007
  11. MYCOPHENOLATE MOFETIL [Suspect]
     Dates: start: 20080910, end: 20080926
  12. IPILIMUMAB [Suspect]
     Indication: MALIGNANT MELANOMA
     Route: 042
     Dates: start: 20080512, end: 20080714
  13. PREDNISONE TAB [Suspect]
     Dosage: 125MG
     Route: 042
     Dates: start: 20080806, end: 20080808
  14. METHYLPREDNISOLONE 16MG TAB [Suspect]
     Dosage: 125MG
     Dates: start: 20080806
  15. NEURONTIN [Concomitant]
     Dates: start: 20060314
  16. OXYCONTIN [Concomitant]
     Dates: start: 20080714
  17. PRILOSEC [Concomitant]
     Dates: start: 20080806

REACTIONS (8)
  - ALANINE AMINOTRANSFERASE INCREASED [None]
  - ASPARTATE AMINOTRANSFERASE INCREASED [None]
  - BLOOD ALKALINE PHOSPHATASE INCREASED [None]
  - BLOOD BILIRUBIN INCREASED [None]
  - DISEASE RECURRENCE [None]
  - LYMPHOEDEMA [None]
  - MYOPATHY [None]
  - ONCOLOGIC COMPLICATION [None]
